FAERS Safety Report 6736663-5 (Version None)
Quarter: 2010Q2

REPORT INFORMATION
  Report Type: 
  Country: None (occurrence: None)
  Receive Date: 20100521
  Receipt Date: 20100510
  Transmission Date: 20101027
  Serious: Yes (Other)
  Sender: FDA-Public Use
  Company Number: PHHY2010US27905

PATIENT
  Sex: Female

DRUGS (13)
  1. RECLAST [Suspect]
     Indication: OSTEOPOROSIS
     Dosage: 5 MG
     Dates: start: 20100109
  2. AMBIEN [Concomitant]
  3. ENABLEX [Concomitant]
  4. TOPAMAX [Concomitant]
  5. AXERT [Concomitant]
  6. ONDANSETRON [Concomitant]
  7. TIZANIDINE [Concomitant]
  8. ZAPONEX [Concomitant]
  9. DIAZEPAM [Concomitant]
  10. METHADONE [Concomitant]
  11. OXYCODONE [Concomitant]
  12. FLUOCINONIDE [Concomitant]
  13. PANOPROROUTE [Concomitant]
     Dosage: UNK

REACTIONS (3)
  - GINGIVAL ABSCESS [None]
  - MOUTH ULCERATION [None]
  - ORAL PAIN [None]
